FAERS Safety Report 25680839 (Version 1)
Quarter: 2025Q3

REPORT INFORMATION
  Report Type: Spontaneous
  Country: CA (occurrence: CA)
  Receive Date: 20250814
  Receipt Date: 20250814
  Transmission Date: 20251021
  Serious: Yes (Disabling, Other)
  Sender: NOVARTIS
  Company Number: CA-002147023-NVSC2025CA127673

PATIENT
  Age: 47 Year
  Sex: Male
  Weight: 109.75 kg

DRUGS (2)
  1. TOBREX [Suspect]
     Active Substance: TOBRAMYCIN
     Indication: Hordeolum
     Dosage: UNK UNK, TID (3 EVERY 1 DAYS), TOPICAL
     Route: 050
  2. TOBREX [Suspect]
     Active Substance: TOBRAMYCIN
     Indication: Eye infection

REACTIONS (3)
  - Blindness unilateral [Not Recovered/Not Resolved]
  - Vision blurred [Not Recovered/Not Resolved]
  - Visual impairment [Not Recovered/Not Resolved]
